FAERS Safety Report 11456973 (Version 5)
Quarter: 2016Q4

REPORT INFORMATION
  Report Type: Report from Study
  Country: BE (occurrence: BE)
  Receive Date: 20150904
  Receipt Date: 20161020
  Transmission Date: 20170206
  Serious: Yes (Hospitalization)
  Sender: FDA-Public Use
  Company Number: PHHY2015BE103419

PATIENT
  Age: 40 Year
  Sex: Female

DRUGS (1)
  1. GILENYA [Suspect]
     Active Substance: FINGOLIMOD HYDROCHLORIDE
     Indication: MULTIPLE SCLEROSIS
     Dosage: 0.5 MG, QD
     Route: 048
     Dates: start: 20130131, end: 20151215

REACTIONS (10)
  - Renal colic [Unknown]
  - Decreased appetite [Unknown]
  - Nausea [Unknown]
  - Ureteric obstruction [Recovering/Resolving]
  - Kidney rupture [Unknown]
  - Ligament rupture [Recovered/Resolved]
  - Hydronephrosis [Unknown]
  - Pyrexia [Unknown]
  - Urinary incontinence [Unknown]
  - Calculus urinary [Unknown]

NARRATIVE: CASE EVENT DATE: 20140218
